FAERS Safety Report 8563747-1 (Version None)
Quarter: 2012Q3

REPORT INFORMATION
  Report Type: 
  Country: None (occurrence: None)
  Receive Date: 20120803
  Receipt Date: 20120724
  Transmission Date: 20120928
  Serious: Yes (Hospitalization, Other)
  Sender: FDA-Public Use
  Company Number: 2009BI027968

PATIENT
  Sex: Male

DRUGS (2)
  1. TYSABRI [Suspect]
     Route: 042
     Dates: start: 20080101, end: 20080101
  2. TYSABRI [Suspect]
     Indication: MULTIPLE SCLEROSIS
     Route: 042
     Dates: start: 20060101, end: 20060101

REACTIONS (5)
  - HYPERHIDROSIS [None]
  - HYPERTENSION [None]
  - PANIC ATTACK [None]
  - ANAPHYLACTIC REACTION [None]
  - UNDERDOSE [None]
